FAERS Safety Report 26187016 (Version 1)
Quarter: 2025Q4

REPORT INFORMATION
  Report Type: Spontaneous
  Country: US (occurrence: US)
  Receive Date: 20251222
  Receipt Date: 20251222
  Transmission Date: 20260118
  Serious: No
  Sender: ROCHE
  Company Number: US-ROCHE-10000460944

PATIENT
  Sex: Female

DRUGS (2)
  1. XOLAIR PFS [Suspect]
     Active Substance: OMALIZUMAB
     Indication: Chronic sinusitis
     Dosage: 300MG/2ML
     Route: 058
     Dates: start: 202511
  2. XOLAIR PFS [Suspect]
     Active Substance: OMALIZUMAB

REACTIONS (3)
  - Injection site reaction [Unknown]
  - Contusion [Unknown]
  - Pain in extremity [Unknown]
